FAERS Safety Report 13535699 (Version 1)
Quarter: 2017Q2

REPORT INFORMATION
  Report Type: Report from Study
  Country: None (occurrence: US)
  Receive Date: 20170511
  Receipt Date: 20170511
  Transmission Date: 20170830
  Serious: Yes (Hospitalization)
  Sender: FDA-Public Use
  Company Number: US-ABBVIE-17K-163-1877960-00

PATIENT
  Age: 63 Year
  Sex: Female

DRUGS (2)
  1. HUMIRA [Suspect]
     Active Substance: ADALIMUMAB
     Indication: PSORIATIC ARTHROPATHY
     Route: 058
     Dates: end: 201701
  2. HUMIRA [Suspect]
     Active Substance: ADALIMUMAB
     Indication: RHEUMATOID ARTHRITIS

REACTIONS (7)
  - Influenza [Recovered/Resolved]
  - Procedural pain [Recovered/Resolved]
  - Hypertension [Unknown]
  - Photosensitivity reaction [Unknown]
  - Staphylococcal infection [Recovered/Resolved]
  - Headache [Recovering/Resolving]
  - Hyperacusis [Unknown]

NARRATIVE: CASE EVENT DATE: 201602
